FAERS Safety Report 4320112-0 (Version None)
Quarter: 2004Q1

REPORT INFORMATION
  Report Type: 
  Country: None (occurrence: None)
  Receive Date: 20040317
  Receipt Date: 20040305
  Transmission Date: 20041129
  Serious: Yes (Death, Hospitalization)
  Sender: FDA-Public Use
  Company Number: NSADSS2002034083

PATIENT
  Age: 78 Year
  Sex: Male
  Weight: 81.1939 kg

DRUGS (14)
  1. REMICADE [Suspect]
     Indication: RHEUMATOID ARTHRITIS
     Dosage: 251 MG, INTRAVENOUS
     Route: 042
     Dates: start: 20020615
  2. REMICADE [Suspect]
     Indication: RHEUMATOID ARTHRITIS
     Dosage: 251 MG, INTRAVENOUS
     Route: 042
     Dates: start: 20020711
  3. REMICADE [Suspect]
     Indication: RHEUMATOID ARTHRITIS
     Dosage: 251 MG, INTRAVENOUS
     Route: 042
     Dates: start: 20020801
  4. CALAN [Concomitant]
  5. LASIX [Concomitant]
  6. LANOXIN [Concomitant]
  7. FOLIC ACID [Concomitant]
  8. DIABETA [Concomitant]
  9. LOPID [Concomitant]
  10. PHENERGAN [Concomitant]
  11. COUMADIN [Concomitant]
  12. METHOTREXATE [Concomitant]
  13. GEMCITABINE (GEMCITABINE) [Concomitant]
  14. CARBOPLATIN [Concomitant]

REACTIONS (2)
  - CRYPTOGENIC ORGANIZING PNEUMONIA [None]
  - PULMONARY HYPERTENSION [None]
